FAERS Safety Report 8050379-7 (Version None)
Quarter: 2012Q1

REPORT INFORMATION
  Report Type: 
  Country: None (occurrence: None)
  Receive Date: 20120117
  Receipt Date: 20120109
  Transmission Date: 20120608
  Serious: Yes (Hospitalization)
  Sender: FDA-Public Use
  Company Number: US-BAYER-2010-001798

PATIENT
  Age: 22 Year
  Sex: Female
  Weight: 86.168 kg

DRUGS (9)
  1. PHENERGAN [Concomitant]
     Dosage: 25 MG, 1 EVERY 6 HOURS AS NEEDED
     Route: 054
  2. NITROFURANTOIN [Concomitant]
     Dosage: UNK
     Route: 048
     Dates: start: 20090104
  3. ONDANSETRON [Concomitant]
     Dosage: 4 MG, UNK
     Route: 048
     Dates: start: 20090104
  4. NSAID'S [Concomitant]
     Dosage: UNK UNK, PRN
     Route: 048
     Dates: start: 19860101, end: 20110101
  5. METOCLOPRAMIDE [Concomitant]
     Dosage: 10 MG, QID
     Route: 048
     Dates: start: 20090108
  6. MULTI-VITAMINS [Concomitant]
     Dosage: DAILY
     Route: 048
  7. ORTHO TRI-CYCLEN [Concomitant]
     Dosage: UNK
     Dates: start: 20090109
  8. REGLAN [Concomitant]
  9. YAZ [Suspect]
     Indication: PRODUCT USED FOR UNKNOWN INDICATION
     Dosage: UNK
     Route: 048
     Dates: start: 20070101, end: 20080101

REACTIONS (2)
  - CHOLECYSTITIS CHRONIC [None]
  - GALLBLADDER INJURY [None]
